FAERS Safety Report 11023113 (Version 2)
Quarter: 2015Q2

REPORT INFORMATION
  Report Type: Spontaneous
  Country: US (occurrence: US)
  Receive Date: 20150413
  Receipt Date: 20150525
  Transmission Date: 20150821
  Serious: No
  Sender: FDA-Public Use
  Company Number: US-JNJFOC-20121213201

PATIENT
  Sex: Male
  Weight: 77.11 kg

DRUGS (3)
  1. IMITREX [Concomitant]
     Active Substance: SUMATRIPTAN\SUMATRIPTAN SUCCINATE
     Indication: MIGRAINE
     Route: 065
     Dates: start: 2000
  2. LEVAQUIN [Suspect]
     Active Substance: LEVOFLOXACIN
     Indication: ANAL FISTULA
     Dosage: 4 TO 5 TIMES
     Route: 048
     Dates: start: 2003
  3. LEVAQUIN [Suspect]
     Active Substance: LEVOFLOXACIN
     Indication: PERIRECTAL ABSCESS
     Dosage: 4 TO 5 TIMES
     Route: 048
     Dates: start: 2003

REACTIONS (2)
  - Anal fistula [Recovered/Resolved]
  - Perirectal abscess [Recovered/Resolved]

NARRATIVE: CASE EVENT DATE: 2003
